FAERS Safety Report 4498393-2 (Version None)
Quarter: 2004Q4

REPORT INFORMATION
  Report Type: 
  Country: None (occurrence: None)
  Receive Date: 20041105
  Receipt Date: 20041027
  Transmission Date: 20050328
  Serious: Yes (Other)
  Sender: FDA-Public Use
  Company Number: AWBNIASPAND2004-10

PATIENT
  Age: 65 Year
  Sex: Female

DRUGS (6)
  1. NIASPAN [Suspect]
     Indication: DYSLIPIDAEMIA
     Dosage: 500 MG PO
     Route: 048
  2. LISINOPRIL [Concomitant]
  3. MOLSIDOMINE [Concomitant]
  4. ATORVASTATIN CALCIUM [Concomitant]
  5. BISOPROLOL FUMARATE [Concomitant]
  6. OPIPRAMOL HYDROCHLORIDE [Concomitant]

REACTIONS (3)
  - FLUSHING [None]
  - HYPERTENSIVE CRISIS [None]
  - TACHYCARDIA [None]
